FAERS Safety Report 9354409 (Version 2)
Quarter: 2013Q2

REPORT INFORMATION
  Report Type: Report from Study
  Country: NZ (occurrence: NZ)
  Receive Date: 20130618
  Receipt Date: 20130624
  Transmission Date: 20140414
  Serious: Yes (Hospitalization)
  Sender: FDA-Public Use
  Company Number: NZ-MERCK-1306NZL006352

PATIENT
  Age: 71 Year
  Sex: Male
  Weight: 78 kg

DRUGS (8)
  1. SITAGLIPTIN PHOSPHATE [Suspect]
     Indication: TYPE 2 DIABETES MELLITUS
     Dosage: 50 MG, QD
     Route: 048
     Dates: start: 20120124
  2. METFORMIN [Concomitant]
     Indication: TYPE 2 DIABETES MELLITUS
     Dosage: TOTAL DAILY DOSE 1 G
     Dates: start: 2008
  3. INHIBACE PLUS [Concomitant]
     Indication: HYPERTENSION
     Dosage: TOTAL DAILY DOSE 12.5 MG
     Dates: start: 2008
  4. ASPIRIN [Concomitant]
     Indication: THROMBOSIS PROPHYLAXIS
     Dosage: TOTAL DAILY DOSE 150 MG
     Dates: start: 2008
  5. SIMVASTATIN [Concomitant]
     Indication: DYSLIPIDAEMIA
     Dosage: TOTAL DAILY DOSE 20 MG
     Route: 048
     Dates: start: 2008
  6. DIPYRIDAMOLE [Concomitant]
     Indication: THROMBOSIS PROPHYLAXIS
     Dosage: TOTAL DAILY DOSE 300 MG
     Dates: start: 2008
  7. FELODIPINE [Concomitant]
     Indication: HYPERTENSION
     Dosage: TOTAL DAILY DOSE 5 MG
     Dates: start: 2008
  8. AMITRIPTYLINE HYDROCHLORIDE [Concomitant]
     Indication: NEUROPATHY PERIPHERAL
     Dosage: TOTAL DAILY DOSE 75 MG
     Route: 048
     Dates: start: 2008

REACTIONS (1)
  - Large intestine polyp [Recovered/Resolved]
